FAERS Safety Report 8037804-2 (Version None)
Quarter: 2012Q1

REPORT INFORMATION
  Report Type: 
  Country: None (occurrence: None)
  Receive Date: 20120111
  Receipt Date: 20111227
  Transmission Date: 20120608
  Serious: Yes (Death, Hospitalization)
  Sender: FDA-Public Use
  Company Number: US-ACTELION-A-NJ2011-58836

PATIENT

DRUGS (7)
  1. VENTAVIS [Suspect]
     Indication: PULMONARY ARTERIAL HYPERTENSION
     Dosage: UNK
     Route: 055
     Dates: start: 20100504, end: 20111207
  2. OXYGEN [Concomitant]
  3. TRACLEER [Suspect]
     Indication: PULMONARY ARTERIAL HYPERTENSION
     Route: 048
  4. POTASSIUM CHLORIDE [Concomitant]
  5. EPOPROSTENOL SODIUM [Suspect]
     Indication: PULMONARY ARTERIAL HYPERTENSION
     Dosage: 22 NG/KG, PER MIN
     Route: 041
     Dates: start: 20111212
  6. DIGOXIN [Concomitant]
  7. BUMETANIDE [Concomitant]

REACTIONS (5)
  - PYREXIA [None]
  - PRODUCTIVE COUGH [None]
  - DYSPNOEA [None]
  - SCLERODERMA [None]
  - PNEUMONIA [None]
